FAERS Safety Report 10012776 (Version 1)
Quarter: 2014Q1

REPORT INFORMATION
  Report Type: Spontaneous
  Country: US (occurrence: None)
  Receive Date: 20140304
  Receipt Date: 20140304
  Transmission Date: 20141002
  Serious: Yes (Hospitalization, Other)
  Sender: FDA-Public Use
  Company Number: RB-58251-2013

PATIENT
  Age: 49 Year
  Sex: Male

DRUGS (5)
  1. SUBOXONE [Suspect]
     Indication: PRODUCT USED FOR UNKNOWN INDICATION
  2. XANAX [Suspect]
     Indication: PRODUCT USED FOR UNKNOWN INDICATION
  3. MORPHINE [Suspect]
     Indication: PRODUCT USED FOR UNKNOWN INDICATION
  4. SEROQUEL [Suspect]
     Indication: PRODUCT USED FOR UNKNOWN INDICATION
  5. HEROIN [Suspect]
     Indication: PRODUCT USED FOR UNKNOWN INDICATION

REACTIONS (15)
  - Weight decreased [None]
  - Injury [None]
  - Hallucination [None]
  - Paranoia [None]
  - Abdominal pain upper [None]
  - Pyrexia [None]
  - Dizziness [None]
  - Insomnia [None]
  - Mental disorder [None]
  - Feeling abnormal [None]
  - Drug abuse [None]
  - Drug ineffective [None]
  - Decreased appetite [None]
  - Vomiting [None]
  - Dysstasia [None]
